FAERS Safety Report 9924966 (Version 1)
Quarter: 2014Q1

REPORT INFORMATION
  Report Type: Spontaneous
  Country: US (occurrence: None)
  Receive Date: 20140226
  Receipt Date: 20140226
  Transmission Date: 20141002
  Serious: Yes (Disabling)
  Sender: FDA-Public Use
  Company Number: None

PATIENT
  Age: 75 Year
  Sex: Female
  Weight: 48.99 kg

DRUGS (1)
  1. PROPOFOL [Suspect]

REACTIONS (6)
  - Clumsiness [None]
  - Dysphonia [None]
  - Dysphagia [None]
  - Crying [None]
  - Emotional disorder [None]
  - Balance disorder [None]
